FAERS Safety Report 15703344 (Version 1)
Quarter: 2018Q4

REPORT INFORMATION
  Report Type: Spontaneous
  Country: US (occurrence: US)
  Receive Date: 20181209
  Receipt Date: 20181209
  Transmission Date: 20190205
  Serious: No
  Sender: FDA-Public Use
  Company Number: None

PATIENT
  Age: 40 Year
  Sex: Female
  Weight: 96.75 kg

DRUGS (8)
  1. CELEBREX [Concomitant]
     Active Substance: CELECOXIB
  2. CLONAZEPAM. [Concomitant]
     Active Substance: CLONAZEPAM
  3. ZOLOFT [Concomitant]
     Active Substance: SERTRALINE HYDROCHLORIDE
  4. IBUPROFEN. [Concomitant]
     Active Substance: IBUPROFEN
  5. CLONAZEPAM, GENERIC FOR KLONOPIN [Suspect]
     Active Substance: CLONAZEPAM
     Indication: ANXIETY
     Dosage: ?          QUANTITY:120 TABLET(S);OTHER FREQUENCY:1-2 TWICE A DAY;?
     Route: 048
  6. ABILIFY [Concomitant]
     Active Substance: ARIPIPRAZOLE
  7. CONCERTA (METHYLPHENIDATE) [Concomitant]
  8. TOPIRAMATE. [Concomitant]
     Active Substance: TOPIRAMATE

REACTIONS (9)
  - Headache [None]
  - Tinnitus [None]
  - Anxiety [None]
  - Obsessive-compulsive disorder [None]
  - Mental disorder [None]
  - Product substitution issue [None]
  - Nausea [None]
  - Dizziness [None]
  - Ill-defined disorder [None]

NARRATIVE: CASE EVENT DATE: 20181108
